FAERS Safety Report 19376251 (Version 1)
Quarter: 2021Q2

REPORT INFORMATION
  Report Type: Spontaneous
  Country: US (occurrence: US)
  Receive Date: 20210604
  Receipt Date: 20210604
  Transmission Date: 20210717
  Serious: No
  Sender: FDA-Public Use
  Company Number: US-CELGENEUS-USA-20210506622

PATIENT
  Age: 78 Year
  Sex: Female
  Weight: 40.41 kg

DRUGS (1)
  1. POMALYST [Suspect]
     Active Substance: POMALIDOMIDE
     Indication: PLASMA CELL MYELOMA
     Dosage: 1 MILLIGRAM
     Route: 048
     Dates: start: 20200617

REACTIONS (2)
  - Hypoacusis [Unknown]
  - Dysphagia [Unknown]

NARRATIVE: CASE EVENT DATE: 20201101
